FAERS Safety Report 6217766-0 (Version None)
Quarter: 2009Q2

REPORT INFORMATION
  Report Type: 
  Country: None (occurrence: None)
  Receive Date: 20090604
  Receipt Date: 20090604
  Transmission Date: 20091009
  Serious: No
  Sender: FDA-Public Use
  Company Number: None

PATIENT
  Sex: Female
  Weight: 48.7 kg

DRUGS (31)
  1. TOBRAMYCIN [Suspect]
     Indication: PNEUMONIA
     Dosage: 130MG Q24H IV
     Route: 042
  2. TOBRAMYCIN [Suspect]
     Indication: SEPSIS
     Dosage: 130MG Q24H IV
     Route: 042
  3. VANCOMYCIN HCL [Concomitant]
  4. ZOSYN [Concomitant]
  5. ANCEF [Concomitant]
  6. ALBUTEROL [Concomitant]
  7. AMIODARONE HCL [Concomitant]
  8. BUMETANIDE [Concomitant]
  9. NOREPINEPHRINE BITARTRATE [Concomitant]
  10. DIGOXIN [Concomitant]
  11. DILTIAZEM [Concomitant]
  12. ENOXAPARIN SODIUM [Concomitant]
  13. FAMOTIDINE [Concomitant]
  14. FLUCONAZOLE [Concomitant]
  15. FUROSEMIDE [Concomitant]
  16. FENTANYL [Concomitant]
  17. INSULIN [Concomitant]
  18. IPRATROPIUM BROMIDE AND ALBUTEROL SULFATE [Concomitant]
  19. LORAZEPAM [Concomitant]
  20. MAGNESIUM SULFATE [Concomitant]
  21. REGLAN [Concomitant]
  22. METOPROLOL SUCCINATE [Concomitant]
  23. MORPHINE [Concomitant]
  24. EPINEPHRINE [Concomitant]
  25. PHENYLEPHRINE [Concomitant]
  26. NYSTATIN [Concomitant]
  27. OLANZAPINE [Concomitant]
  28. PANTOPRAZOLE SODIUM [Concomitant]
  29. POTASSIUM CHLORIDE [Concomitant]
  30. TRAZODONE HCL [Concomitant]
  31. VECURONIUM BROMIDE [Concomitant]

REACTIONS (2)
  - DEAFNESS BILATERAL [None]
  - MIDDLE EAR EFFUSION [None]
